FAERS Safety Report 7242056-7 (Version None)
Quarter: 2011Q1

REPORT INFORMATION
  Report Type: 
  Country: None (occurrence: None)
  Receive Date: 20110124
  Receipt Date: 20110112
  Transmission Date: 20110831
  Serious: Yes (Hospitalization, Other)
  Sender: FDA-Public Use
  Company Number: PHHY2010US87665

PATIENT
  Sex: Female

DRUGS (11)
  1. GLEEVEC [Suspect]
     Indication: ACUTE LYMPHOCYTIC LEUKAEMIA
     Dosage: 600 MG, QD
     Route: 048
     Dates: start: 20100201
  2. MERCAPTOPURINE [Suspect]
     Dosage: 50 MG, TID
     Route: 048
     Dates: start: 20100801
  3. PRILOSEC [Concomitant]
     Dosage: 20 MG, UNK
  4. ALBUTEROL [Concomitant]
  5. CYTARABINE [Concomitant]
  6. METHOTREXATE [Suspect]
     Dosage: 200 MG, UNK
     Dates: start: 20100801
  7. GLEEVEC [Suspect]
     Dosage: 400 MG, UNK
     Dates: start: 20100801
  8. ZOFRAN [Concomitant]
     Indication: NAUSEA
     Dosage: 4 MG, UNK
  9. ANTIBIOTICS [Concomitant]
  10. COMPAZINE [Concomitant]
     Dosage: 10 MG, UNK
  11. OXYGEN [Concomitant]

REACTIONS (10)
  - NAUSEA [None]
  - FATIGUE [None]
  - PNEUMONIA KLEBSIELLA [None]
  - WEIGHT DECREASED [None]
  - FALL [None]
  - DYSPNOEA [None]
  - CYANOSIS [None]
  - ASTHENIA [None]
  - MUSCULOSKELETAL CHEST PAIN [None]
  - CHEST DISCOMFORT [None]
